FAERS Safety Report 6148932-0 (Version None)
Quarter: 2009Q2

REPORT INFORMATION
  Report Type: 
  Country: None (occurrence: None)
  Receive Date: 20090406
  Receipt Date: 20090326
  Transmission Date: 20091009
  Serious: Yes (Congenital Anomaly)
  Sender: FDA-Public Use
  Company Number: GXKR2009GB03950

PATIENT
  Sex: Male

DRUGS (3)
  1. FLUOXETINE [Suspect]
     Dosage: MATERNAL DOSE: 40 MG, TRANSPLACENTAL; MATERNAL DOSE: 20 MG/DAY, TRANSPLACENTAL
     Route: 064
     Dates: start: 20030821, end: 20060808
  2. FLUOXETINE [Suspect]
     Dosage: MATERNAL DOSE: 40 MG, TRANSPLACENTAL; MATERNAL DOSE: 20 MG/DAY, TRANSPLACENTAL
     Route: 064
     Dates: start: 20060808
  3. PANTOPRAZOLE SODIUM [Concomitant]

REACTIONS (3)
  - ALCOHOL USE [None]
  - DRUG EXPOSURE DURING PREGNANCY [None]
  - RENAL DYSPLASIA [None]
